FAERS Safety Report 16493451 (Version 1)
Quarter: 2019Q2

REPORT INFORMATION
  Report Type: Spontaneous
  Country: DE (occurrence: DE)
  Receive Date: 20190628
  Receipt Date: 20190628
  Transmission Date: 20190711
  Serious: Yes (Other)
  Sender: FDA-Public Use
  Company Number: DE-AUROBINDO-AUR-APL-2019-036384

PATIENT

DRUGS (5)
  1. QUETIAPINE. [Suspect]
     Active Substance: QUETIAPINE
     Indication: ORGANIC BRAIN SYNDROME
     Dosage: 50 MILLIGRAM, ONCE A DAY, 0. - 38.2. GESTATIONAL WEEK
     Route: 048
     Dates: start: 20180319, end: 20181212
  2. LEVETIRACETAM. [Concomitant]
     Active Substance: LEVETIRACETAM
     Indication: EPILEPSY
     Dosage: 1500 [MG/D (2X750 BZW. 3X500 MG/D), 0.- 38.2. GESTATIONAL WEEK
     Route: 048
     Dates: start: 20180319, end: 20181212
  3. GINGIUM INTENS [Concomitant]
     Indication: ORGANIC BRAIN SYNDROME
     Dosage: 120 MILLIGRAM, ONCE A DAY, 0.- 5.4. GESTATIONAL WEEK
     Route: 048
     Dates: start: 20180319, end: 20180427
  4. PIRACETAM [Concomitant]
     Active Substance: PIRACETAM
     Indication: ORGANIC BRAIN SYNDROME
     Dosage: 1200 MILLIGRAM, ONCE A DAY, 0. - 5.4. GESTATIONAL WEEK
     Route: 048
     Dates: start: 20180319, end: 20180427
  5. LEVEMIR [Concomitant]
     Active Substance: INSULIN DETEMIR
     Indication: GESTATIONAL DIABETES
     Dosage: 3 INTERNATIONAL UNIT, ONCE A DAY, 3 [I.E./D ], 28.1. - 38.2. GESTATIONAL WEEK
     Route: 058
     Dates: start: 20181002, end: 20181212

REACTIONS (2)
  - Exposure during pregnancy [Unknown]
  - Gestational diabetes [Recovered/Resolved]
